FAERS Safety Report 11138571 (Version 4)
Quarter: 2015Q2

REPORT INFORMATION
  Report Type: Spontaneous
  Country: TW (occurrence: TW)
  Receive Date: 20150527
  Receipt Date: 20150624
  Transmission Date: 20150821
  Serious: Yes (Hospitalization)
  Sender: FDA-Public Use
  Company Number: TW-ACTELION-A-CH2015-118481

PATIENT
  Age: 48 Year
  Sex: Female
  Weight: 98.5 kg

DRUGS (3)
  1. TRACLEER [Suspect]
     Active Substance: BOSENTAN\BOSENTAN MONOHYDRATE
     Dosage: 62.5 MG, BID
     Route: 048
     Dates: start: 20140312, end: 201404
  2. TRACLEER [Suspect]
     Active Substance: BOSENTAN\BOSENTAN MONOHYDRATE
     Indication: PULMONARY ARTERIAL HYPERTENSION
     Dosage: 125 MG, BID
     Route: 048
     Dates: start: 20140409, end: 20150525
  3. VENTAVIS [Suspect]
     Active Substance: ILOPROST
     Indication: PULMONARY ARTERIAL HYPERTENSION
     Dosage: 2.5 MCG, Q6HRS
     Route: 055
     Dates: start: 20110105

REACTIONS (14)
  - Hepatocellular injury [Unknown]
  - Carbohydrate antigen 19-9 increased [Not Recovered/Not Resolved]
  - Autoimmune hepatitis [Recovering/Resolving]
  - Alanine aminotransferase increased [Not Recovered/Not Resolved]
  - Aspartate aminotransferase increased [Not Recovered/Not Resolved]
  - Biopsy liver [Unknown]
  - Jaundice [Recovering/Resolving]
  - General physical condition abnormal [Unknown]
  - Ocular icterus [Recovering/Resolving]
  - Benign ovarian tumour [Unknown]
  - Liver function test abnormal [Not Recovered/Not Resolved]
  - Hyperbilirubinaemia [Recovering/Resolving]
  - Bilirubin conjugated increased [Not Recovered/Not Resolved]
  - Blood bilirubin increased [Not Recovered/Not Resolved]

NARRATIVE: CASE EVENT DATE: 201505
